FAERS Safety Report 4852607-5 (Version None)
Quarter: 2005Q4

REPORT INFORMATION
  Report Type: 
  Country: None (occurrence: None)
  Receive Date: 20051213
  Receipt Date: 20040303
  Transmission Date: 20060501
  Serious: Yes (Hospitalization, Other)
  Sender: FDA-Public Use
  Company Number: PHBS2004JP03109

PATIENT
  Age: 83 Year
  Sex: Female

DRUGS (1)
  1. LAMISIL [Suspect]
     Indication: NAIL TINEA
     Dosage: 125 MG, QD
     Route: 048
     Dates: start: 20040106, end: 20040201

REACTIONS (9)
  - CYTOMEGALOVIRUS ANTIBODY POSITIVE [None]
  - ERYTHEMA MULTIFORME [None]
  - FATIGUE [None]
  - JAUNDICE [None]
  - LIVER DISORDER [None]
  - OEDEMA [None]
  - PARVOVIRUS B19 SEROLOGY POSITIVE [None]
  - PYREXIA [None]
  - SKIN INFECTION [None]
